FAERS Safety Report 22904898 (Version 4)
Quarter: 2023Q4

REPORT INFORMATION
  Report Type: Spontaneous
  Country: JP (occurrence: JP)
  Receive Date: 20230905
  Receipt Date: 20231101
  Transmission Date: 20240109
  Serious: Yes (Other)
  Sender: FDA-Public Use
  Company Number: None

PATIENT
  Age: 61 Year
  Sex: Male

DRUGS (2)
  1. BOTOX [Suspect]
     Active Substance: ONABOTULINUMTOXINA
     Indication: Muscle spasms
     Dosage: TIME INTERVAL: AS NECESSARY: 400 IU, Q3M
     Route: 030
     Dates: start: 20130218, end: 20130218
  2. BOTOX [Suspect]
     Active Substance: ONABOTULINUMTOXINA
     Indication: Muscle spasms
     Dosage: TIME INTERVAL: AS NECESSARY: 400 IU, Q3M
     Route: 030
     Dates: start: 20230816, end: 20230816

REACTIONS (3)
  - Cellulitis [Recovered/Resolved]
  - Erythema [Recovering/Resolving]
  - Peripheral swelling [Recovering/Resolving]

NARRATIVE: CASE EVENT DATE: 20230801
